FAERS Safety Report 7887764-X (Version None)
Quarter: 2011Q4

REPORT INFORMATION
  Report Type: 
  Country: None (occurrence: None)
  Receive Date: 20111101
  Receipt Date: 20111018
  Transmission Date: 20120403
  Serious: Yes (Other)
  Sender: FDA-Public Use
  Company Number: 1078924

PATIENT
  Age: 76 Year
  Sex: Female
  Weight: 76 kg

DRUGS (16)
  1. CAPTOPRIL [Concomitant]
  2. METFORMIN HCL [Concomitant]
  3. SYNTHROID [Concomitant]
  4. ACTOS [Concomitant]
  5. LIPITOR [Concomitant]
  6. (CALCIUM) [Concomitant]
  7. NORVASC [Concomitant]
  8. CLONAZEPAM [Concomitant]
  9. (COLACE) [Concomitant]
  10. (LOSEC /00661201/) [Concomitant]
  11. FRAGMIN [Concomitant]
  12. GLYBURIDE [Concomitant]
  13. VANCOMYCIN HCL [Suspect]
     Indication: PRODUCT USED FOR UNKNOWN INDICATION
     Dosage: 750.0MG, 1 EVERY 12 HOURS, 1 GRAM, 1 EVERY 12 HOURS, 1 GRAM, 1 EVERY 1 DAY, INTRAVENOUS
     Route: 042
  14. VANCOMYCIN HCL [Suspect]
     Indication: PRODUCT USED FOR UNKNOWN INDICATION
     Dosage: 750.0MG, 1 EVERY 12 HOURS, 1 GRAM, 1 EVERY 12 HOURS, 1 GRAM, 1 EVERY 1 DAY, INTRAVENOUS
     Route: 042
  15. VANCOMYCIN HCL [Suspect]
     Indication: PRODUCT USED FOR UNKNOWN INDICATION
     Dosage: 750.0MG, 1 EVERY 12 HOURS, 1 GRAM, 1 EVERY 12 HOURS, 1 GRAM, 1 EVERY 1 DAY, INTRAVENOUS
     Route: 042
  16. CETIRIZINE HCL [Concomitant]

REACTIONS (3)
  - RASH [None]
  - BLISTER [None]
  - PRURITUS [None]
